FAERS Safety Report 15656665 (Version 4)
Quarter: 2019Q2

REPORT INFORMATION
  Report Type: Spontaneous
  Country: US (occurrence: US)
  Receive Date: 20181126
  Receipt Date: 20190528
  Transmission Date: 20190711
  Serious: Yes (Other)
  Sender: FDA-Public Use
  Company Number: US-PFIZER INC-2018480891

PATIENT
  Age: 22 Year
  Sex: Male

DRUGS (3)
  1. BENEFIX [Suspect]
     Active Substance: COAGULATION FACTOR IX RECOMBINANT HUMAN\ISOPROPYL ALCOHOL
     Indication: DENTAL OPERATION
     Dosage: 6800 IU, UNK, (PIOR TO DENTAL EXTRACTION)
     Route: 042
     Dates: start: 20190215, end: 20190227
  2. LYSTEDA [Concomitant]
     Active Substance: TRANEXAMIC ACID
     Dosage: 1300 MG, 3X/DAY(5 DAYS)
     Dates: start: 20190214, end: 20190219
  3. LYSTEDA [Concomitant]
     Active Substance: TRANEXAMIC ACID
     Dosage: 1300 MG, 3X/DAY(5 DAYS)
     Dates: start: 20190222, end: 20190226

REACTIONS (3)
  - Haemorrhage [Recovered/Resolved]
  - Inhibiting antibodies positive [Unknown]
  - Tooth infection [Unknown]

NARRATIVE: CASE EVENT DATE: 20190215
